FAERS Safety Report 12688606 (Version 1)
Quarter: 2016Q3

REPORT INFORMATION
  Report Type: Spontaneous
  Country: US (occurrence: None)
  Receive Date: 20160825
  Receipt Date: 20160825
  Transmission Date: 20161109
  Serious: No
  Sender: FDA-Public Use
  Company Number: None

PATIENT

DRUGS (2)
  1. DEXTROSE DEXTROSE HOSPIRA, INC. [Suspect]
     Active Substance: DEXTROSE
     Dosage: INJECTION 10% IV BAG, 250 ML
  2. DEXTORSE 5% DEXTROSE HOSPIRA [Suspect]
     Active Substance: DEXTROSE

REACTIONS (2)
  - Product packaging confusion [None]
  - Product label confusion [None]
